FAERS Safety Report 25528437 (Version 3)
Quarter: 2025Q3

REPORT INFORMATION
  Report Type: Spontaneous
  Country: US (occurrence: US)
  Receive Date: 20250708
  Receipt Date: 20250905
  Transmission Date: 20251020
  Serious: No
  Sender: AMGEN
  Company Number: US-AMGEN-USASP2025131849

PATIENT
  Age: 69 Year
  Sex: Female

DRUGS (3)
  1. OTEZLA [Suspect]
     Active Substance: APREMILAST
     Indication: Lichen planus
     Route: 048
     Dates: start: 20250625, end: 2025
  2. OTEZLA [Suspect]
     Active Substance: APREMILAST
     Indication: Off label use
     Route: 048
     Dates: start: 20250703
  3. OTEZLA [Suspect]
     Active Substance: APREMILAST
     Dosage: 30 MILLIGRAM, BID (12TH DAY OF TAKING OTEZLA)
     Route: 048
     Dates: start: 2025

REACTIONS (11)
  - Off label use [Unknown]
  - Nausea [Unknown]
  - SARS-CoV-2 test positive [Recovering/Resolving]
  - Pyrexia [Unknown]
  - Oropharyngeal pain [Unknown]
  - Adverse event [Not Recovered/Not Resolved]
  - Arthralgia [Not Recovered/Not Resolved]
  - COVID-19 [Not Recovered/Not Resolved]
  - Gastrointestinal disorder [Not Recovered/Not Resolved]
  - Groin pain [Not Recovered/Not Resolved]
  - Gait disturbance [Not Recovered/Not Resolved]

NARRATIVE: CASE EVENT DATE: 20250101
